FAERS Safety Report 7222817-0 (Version None)
Quarter: 2011Q1

REPORT INFORMATION
  Report Type: 
  Country: None (occurrence: None)
  Receive Date: 20110112
  Receipt Date: 20101230
  Transmission Date: 20110831
  Serious: Yes (Other)
  Sender: FDA-Public Use
  Company Number: GB-MYLANLABS-2010S1022225

PATIENT
  Age: 13 Year
  Sex: Male

DRUGS (5)
  1. EQUASYM [Suspect]
     Indication: AUTISM
     Route: 048
     Dates: start: 20060901
  2. EQUASYM [Suspect]
     Indication: ATTENTION DEFICIT/HYPERACTIVITY DISORDER
     Route: 048
     Dates: start: 20060901
  3. RISPERDONE [Suspect]
     Indication: ATTENTION DEFICIT/HYPERACTIVITY DISORDER
     Route: 048
     Dates: start: 20060601
  4. VEXOL [Suspect]
     Indication: PRODUCT USED FOR UNKNOWN INDICATION
     Route: 047
  5. PRED FORTE [Suspect]
     Indication: PRODUCT USED FOR UNKNOWN INDICATION
     Route: 047

REACTIONS (4)
  - BENIGN INTRACRANIAL HYPERTENSION [None]
  - EYE SWELLING [None]
  - CONJUNCTIVITIS [None]
  - VISUAL IMPAIRMENT [None]
